FAERS Safety Report 9502535 (Version 1)
Quarter: 2013Q3

REPORT INFORMATION
  Report Type: Spontaneous
  Country: FR (occurrence: FR)
  Receive Date: 20130906
  Receipt Date: 20130906
  Transmission Date: 20140515
  Serious: Yes (Life-Threatening, Hospitalization)
  Sender: FDA-Public Use
  Company Number: FR-JNJFOC-20130816609

PATIENT
  Age: 27 Year
  Sex: Male

DRUGS (7)
  1. REMICADE [Suspect]
     Indication: CROHN^S DISEASE
     Route: 042
     Dates: start: 20120514, end: 20130405
  2. HUMIRA [Suspect]
     Indication: CROHN^S DISEASE
     Route: 042
     Dates: start: 20130430, end: 20130430
  3. IMUREL [Suspect]
     Indication: CROHN^S DISEASE
     Dosage: DOSAGE: 1DF
     Route: 048
     Dates: start: 20120502, end: 20130517
  4. CORTANCYL [Suspect]
     Indication: CROHN^S DISEASE
     Route: 048
     Dates: start: 201205, end: 20130517
  5. OXYNORM [Concomitant]
     Indication: PAIN
     Route: 048
  6. FERINJECT [Concomitant]
     Route: 058
     Dates: start: 20130502
  7. CALCIUM/COLECALCIFEROL [Concomitant]
     Dosage: 880 IU
     Route: 048

REACTIONS (10)
  - Nocardiosis [Recovered/Resolved]
  - Septic shock [Recovered/Resolved]
  - Intestinal obstruction [Recovered/Resolved]
  - Thrombocytopenia [Recovered/Resolved]
  - Hyponatraemia [Recovered/Resolved]
  - Pneumocystis jirovecii pneumonia [Recovered/Resolved]
  - Hypokalaemia [Recovered/Resolved]
  - Therapeutic response decreased [Unknown]
  - Anaemia [Recovered/Resolved]
  - Neutropenia [Recovered/Resolved]
